FAERS Safety Report 7282249-6 (Version None)
Quarter: 2011Q1

REPORT INFORMATION
  Report Type: 
  Country: None (occurrence: None)
  Receive Date: 20110125
  Receipt Date: 20101231
  Transmission Date: 20110831
  Serious: Yes (Death, Other)
  Sender: FDA-Public Use
  Company Number: AUR-APL-2011-00141

PATIENT
  Age: 30 Year
  Sex: Male

DRUGS (3)
  1. DIAZEPAM [Suspect]
     Dosage: ORAL
     Route: 048
  2. PROPOXYPHENE HCL AND ACETAMINOPHEN [Suspect]
     Dosage: ORAL
     Route: 048
  3. MIRTAZAPINE [Suspect]
     Dosage: ORAL
     Route: 048

REACTIONS (5)
  - COMPLETED SUICIDE [None]
  - TOXICITY TO VARIOUS AGENTS [None]
  - CARDIAC ARREST [None]
  - INTENTIONAL DRUG MISUSE [None]
  - RESPIRATORY ARREST [None]
